FAERS Safety Report 14142887 (Version 1)
Quarter: 2017Q4

REPORT INFORMATION
  Report Type: Spontaneous
  Country: US (occurrence: US)
  Receive Date: 20171030
  Receipt Date: 20171030
  Transmission Date: 20180321
  Serious: No
  Sender: FDA-Public Use
  Company Number: US-LEXICON PHARMACEUTICALS, INC-17-1606-00924

PATIENT
  Sex: Male

DRUGS (4)
  1. AFINITOR [Concomitant]
     Active Substance: EVEROLIMUS
  2. TELOTRISTAT ETHYL [Suspect]
     Active Substance: TELOTRISTAT ETHYL
     Indication: CARCINOID TUMOUR
     Route: 048
     Dates: start: 20170314
  3. SEROTONIN [Concomitant]
     Active Substance: SEROTONIN
  4. LOMOTIL [Concomitant]
     Active Substance: ATROPINE SULFATE\DIPHENOXYLATE HYDROCHLORIDE

REACTIONS (5)
  - Flushing [Unknown]
  - Diarrhoea [Recovered/Resolved]
  - 5-hydroxyindolacetic acid in urine increased [Unknown]
  - Weight decreased [Unknown]
  - Blood chromogranin A increased [Unknown]

NARRATIVE: CASE EVENT DATE: 2017
